FAERS Safety Report 8955160 (Version 1)
Quarter: 2012Q4

REPORT INFORMATION
  Report Type: 
  Country: CA (occurrence: CA)
  Receive Date: 20121207
  Receipt Date: 20121207
  Transmission Date: 20130627
  Serious: Yes (Disabling)
  Sender: FDA-Public Use
  Company Number: CA-ASTRAZENECA-2012SE89998

PATIENT
  Age: 69 Year
  Sex: Male

DRUGS (3)
  1. CRESTOR [Suspect]
     Route: 048
  2. ASA [Concomitant]
  3. MULTIVITAMINE [Concomitant]

REACTIONS (4)
  - Activities of daily living impaired [Unknown]
  - Mobility decreased [Unknown]
  - Myalgia [Unknown]
  - Rash pruritic [Unknown]
